FAERS Safety Report 4394842-9 (Version None)
Quarter: 2004Q3

REPORT INFORMATION
  Report Type: 
  Country: None (occurrence: None)
  Receive Date: 20040707
  Receipt Date: 20040621
  Transmission Date: 20050211
  Serious: Yes (Hospitalization)
  Sender: FDA-Public Use
  Company Number: 2004SE03499

PATIENT
  Age: 24 Month
  Sex: Female

DRUGS (7)
  1. PROPOFOL [Suspect]
     Indication: ANAESTHESIA
     Dosage: 90 MG DAILY IV
     Route: 042
     Dates: start: 20040525, end: 20040525
  2. PROPOFOL [Suspect]
     Indication: CATHETERISATION CARDIAC
     Dosage: 90 MG DAILY IV
     Route: 042
     Dates: start: 20040525, end: 20040525
  3. KETAMINE HCL [Suspect]
     Dosage: 50 MG DAILY IV
     Route: 042
     Dates: start: 20040525, end: 20040525
  4. MIDAZOLAM [Suspect]
     Indication: CATHETERISATION CARDIAC
     Dosage: 1.5 MG DAILY IV
     Route: 042
     Dates: start: 20040225, end: 20040525
  5. ATHROPINE [Suspect]
     Indication: CATHETERISATION CARDIAC
     Dosage: 0.18 MG DAILY IV
     Route: 042
     Dates: start: 20050525, end: 20040525
  6. LONARID [Suspect]
     Indication: ANALGESIC EFFECT
     Dates: start: 20040526, end: 20040526
  7. LONARID [Suspect]
     Indication: ANTIPYRESIS
     Dates: start: 20040526, end: 20040526

REACTIONS (10)
  - ABDOMINAL PAIN [None]
  - ALANINE AMINOTRANSFERASE INCREASED [None]
  - ANAESTHETIC COMPLICATION [None]
  - ASPARTATE AMINOTRANSFERASE INCREASED [None]
  - ASTHENIA [None]
  - GAMMA-GLUTAMYLTRANSFERASE INCREASED [None]
  - PYREXIA [None]
  - SOMNOLENCE [None]
  - VOMITING [None]
  - WHITE BLOOD CELL COUNT DECREASED [None]
